FAERS Safety Report 8669529 (Version 7)
Quarter: 2013Q2

REPORT INFORMATION
  Report Type: Spontaneous
  Country: US (occurrence: US)
  Receive Date: 20120718
  Receipt Date: 20130520
  Transmission Date: 20140414
  Serious: No
  Sender: FDA-Public Use
  Company Number: US-PFIZER INC-2012169171

PATIENT
  Age: 53 Year
  Sex: Male

DRUGS (13)
  1. LYRICA [Suspect]
     Indication: NEURALGIA
     Dosage: 150 MG, 2X/DAY
  2. SYMBICORT [Suspect]
     Indication: OROPHARYNGEAL PAIN
     Dosage: UNK
  3. SYMBICORT [Suspect]
     Indication: HYPERSENSITIVITY
  4. ALPRAZOLAM [Concomitant]
     Dosage: UNK
  5. BENADRYL [Concomitant]
     Dosage: UNK
  6. CADUET [Concomitant]
     Dosage: UNK
  7. CELEBREX [Concomitant]
     Dosage: UNK
  8. PREDNISONE [Concomitant]
     Dosage: UNK
  9. PRILOSEC [Concomitant]
     Dosage: UNK
  10. TRAMADOL [Concomitant]
     Dosage: UNK
  11. VENTOLIN [Concomitant]
     Dosage: UNK
  12. VICODIN [Concomitant]
     Dosage: UNK
  13. CEPHALEXIN [Concomitant]
     Dosage: UNK

REACTIONS (2)
  - Drug ineffective [Unknown]
  - Dry mouth [Unknown]
